FAERS Safety Report 21889652 (Version 1)
Quarter: 2023Q1

REPORT INFORMATION
  Report Type: Spontaneous
  Country: US (occurrence: US)
  Receive Date: 20230120
  Receipt Date: 20230120
  Transmission Date: 20230418
  Serious: No
  Sender: FDA-Public Use
  Company Number: US-JNJFOC-20230126489

PATIENT
  Sex: Female

DRUGS (1)
  1. MENS ROGAINE EXTRA STRENGTH [Suspect]
     Active Substance: MINOXIDIL
     Indication: Alopecia
     Dosage: DOSE: 1 PUMP TO PUT ON SCALP EVERY 3 DAYS
     Route: 061

REACTIONS (3)
  - Product use issue [Unknown]
  - Intentional product misuse [Unknown]
  - Product container issue [Unknown]
